FAERS Safety Report 6471735-4 (Version None)
Quarter: 2009Q4

REPORT INFORMATION
  Report Type: 
  Country: None (occurrence: None)
  Receive Date: 20091203
  Receipt Date: 20080611
  Transmission Date: 20100525
  Serious: Yes (Death, Hospitalization)
  Sender: FDA-Public Use
  Company Number: MX-ELI_LILLY_AND_COMPANY-MX200803002378

PATIENT
  Age: 58 Year
  Sex: Female

DRUGS (5)
  1. GEMZAR [Suspect]
     Indication: BREAST CANCER STAGE IV
     Route: 065
     Dates: start: 20071223
  2. DOCETAXEL [Concomitant]
     Indication: BREAST CANCER STAGE IV
     Route: 065
  3. OMEPRAZOLE [Concomitant]
     Route: 065
  4. RANITIDINE [Concomitant]
     Route: 065
  5. DOLASETRON [Concomitant]
     Route: 065

REACTIONS (3)
  - DRUG TOXICITY [None]
  - LIVER INJURY [None]
  - STOMATITIS [None]
